FAERS Safety Report 10404486 (Version 3)
Quarter: 2014Q4

REPORT INFORMATION
  Report Type: Spontaneous
  Country: US (occurrence: US)
  Receive Date: 20140823
  Receipt Date: 20141014
  Transmission Date: 20150528
  Serious: Yes (Other)
  Sender: FDA-Public Use
  Company Number: US-009507513-2011SP037382

PATIENT
  Sex: Female
  Weight: 79.38 kg

DRUGS (4)
  1. NUVARING [Suspect]
     Active Substance: ETHINYL ESTRADIOL\ETONOGESTREL
     Indication: CONTRACEPTION
     Dosage: UNK
     Dates: start: 20080911, end: 200908
  2. METHYLPHENIDATE [Concomitant]
     Active Substance: METHYLPHENIDATE
     Indication: ATTENTION DEFICIT/HYPERACTIVITY DISORDER
     Dosage: 10 MG, TID
     Dates: start: 1997, end: 2011
  3. PHENTERMINE [Suspect]
     Active Substance: PHENTERMINE
     Indication: WEIGHT DECREASED
     Dates: end: 200908
  4. ORLISTAT [Suspect]
     Active Substance: ORLISTAT
     Indication: WEIGHT DECREASED
     Dates: end: 20090807

REACTIONS (7)
  - Increased tendency to bruise [Unknown]
  - Oedema peripheral [Unknown]
  - Embolism venous [Unknown]
  - Migraine with aura [Recovering/Resolving]
  - Cerebrovascular accident [Recovered/Resolved with Sequelae]
  - Hypocalcaemia [Unknown]
  - Weight increased [Unknown]

NARRATIVE: CASE EVENT DATE: 200902
